FAERS Safety Report 7292008-6 (Version None)
Quarter: 2011Q1

REPORT INFORMATION
  Report Type: 
  Country: None (occurrence: None)
  Receive Date: 20110215
  Receipt Date: 20110205
  Transmission Date: 20110831
  Serious: Yes (Hospitalization)
  Sender: FDA-Public Use
  Company Number: US-BIOGENIDEC-2010BI041677

PATIENT
  Age: 50 Year
  Sex: Female

DRUGS (9)
  1. XENADERM OINTMENT [Concomitant]
     Route: 061
  2. TYSABRI [Suspect]
     Route: 042
     Dates: start: 20071106, end: 20080711
  3. TEGREEN [Concomitant]
  4. TEGRETOL-XR [Concomitant]
  5. MACROBID [Concomitant]
  6. LORAZEPAM [Concomitant]
     Indication: CONVULSION
  7. 4 AMINOPYRIDINE [Concomitant]
     Indication: MULTIPLE SCLEROSIS
  8. TYSABRI [Suspect]
     Indication: MULTIPLE SCLEROSIS
     Route: 042
     Dates: start: 20100114
  9. TEGRETOL-XR [Concomitant]
     Indication: CONVULSION

REACTIONS (3)
  - DRUG INEFFECTIVE [None]
  - PROGRESSIVE RELAPSING MULTIPLE SCLEROSIS [None]
  - STATUS EPILEPTICUS [None]
